FAERS Safety Report 25756264 (Version 1)
Quarter: 2025Q3

REPORT INFORMATION
  Report Type: Spontaneous
  Country: US (occurrence: None)
  Receive Date: 20250902
  Receipt Date: 20250902
  Transmission Date: 20251021
  Serious: Yes (Disabling)
  Sender: FDA-CTU
  Company Number: None

PATIENT
  Age: 43 Year
  Sex: Male
  Weight: 71.1 kg

DRUGS (10)
  1. SERTRALINE [Suspect]
     Active Substance: SERTRALINE HYDROCHLORIDE
     Indication: Stress
     Dosage: FREQUENCY : DAILY;?
     Route: 048
     Dates: start: 20150901, end: 20250519
  2. CIALIS [Concomitant]
     Active Substance: TADALAFIL
  3. VITAMINS [Concomitant]
     Active Substance: VITAMINS
  4. MAGNESIUM [Concomitant]
     Active Substance: MAGNESIUM
  5. ZINC [Concomitant]
     Active Substance: ZINC
  6. POTASSIUM [Concomitant]
     Active Substance: POTASSIUM
  7. FISH OIL [Concomitant]
     Active Substance: FISH OIL
  8. oil of oregano [Concomitant]
  9. PEPPERMINT OIL [Concomitant]
     Active Substance: PEPPERMINT OIL
  10. edible [Concomitant]

REACTIONS (8)
  - Emotional disorder [None]
  - Erectile dysfunction [None]
  - Loss of libido [None]
  - Premature ejaculation [None]
  - Brain fog [None]
  - Depression [None]
  - Insomnia [None]
  - Cognitive disorder [None]

NARRATIVE: CASE EVENT DATE: 20250519
